FAERS Safety Report 17718772 (Version 4)
Quarter: 2020Q2

REPORT INFORMATION
  Report Type: Spontaneous
  Country: US (occurrence: US)
  Receive Date: 20200428
  Receipt Date: 20200604
  Transmission Date: 20200714
  Serious: Yes (Hospitalization)
  Sender: FDA-Public Use
  Company Number: US-TAKEDA-2020TUS019912

PATIENT
  Sex: Female

DRUGS (1)
  1. NINLARO [Suspect]
     Active Substance: IXAZOMIB CITRATE
     Indication: PLASMA CELL MYELOMA
     Dosage: 4 MILLIGRAM
     Route: 048
     Dates: start: 20200407

REACTIONS (6)
  - Urinary tract infection [Unknown]
  - Vomiting [Unknown]
  - Clostridium difficile infection [Unknown]
  - Nausea [Unknown]
  - Tooth abscess [Unknown]
  - Diarrhoea [Unknown]
